FAERS Safety Report 16190565 (Version 1)
Quarter: 2019Q2

REPORT INFORMATION
  Report Type: Report from Study
  Country: HU (occurrence: HU)
  Receive Date: 20190412
  Receipt Date: 20190412
  Transmission Date: 20190711
  Serious: Yes (Hospitalization, Other)
  Sender: FDA-Public Use
  Company Number: HU-PFIZER INC-2019153437

PATIENT
  Age: 50 Year
  Sex: Male
  Weight: 73 kg

DRUGS (14)
  1. PANTOPRAZOLE [Suspect]
     Active Substance: PANTOPRAZOLE
     Dosage: 40 MILLIGRAM, QD
     Route: 065
  2. TIENAM [Concomitant]
     Active Substance: CILASTATIN SODIUM\IMIPENEM
     Dosage: 2 GRAM, QD
     Route: 065
  3. ENTEROL [ATTAPULGITE;PECTIN;PHTHALYLSULFACETAMIDE] [Concomitant]
     Dosage: UNK UNK, QD
     Route: 065
  4. BETALOC ZOK [Concomitant]
     Active Substance: METOPROLOL SUCCINATE
     Dosage: 100 MILLIGRAM, QD
     Route: 065
  5. TAFINLAR [Suspect]
     Active Substance: DABRAFENIB MESYLATE
     Dosage: 4 DF, 1X/DAY
     Route: 048
     Dates: start: 201902, end: 201902
  6. TAFINLAR [Suspect]
     Active Substance: DABRAFENIB MESYLATE
     Indication: METASTATIC MALIGNANT MELANOMA
     Dosage: 4 DF, 1X/DAY
     Route: 048
     Dates: start: 20181031, end: 201901
  7. AMIKIN [Suspect]
     Active Substance: AMIKACIN SULFATE
     Dosage: 1 GRAM, QD
     Route: 065
     Dates: start: 20181105, end: 20181115
  8. KLACID [CLARITHROMYCIN] [Concomitant]
     Active Substance: CLARITHROMYCIN
     Dosage: 1000 MILLIGRAM, QD
     Route: 065
  9. TAFINLAR [Suspect]
     Active Substance: DABRAFENIB MESYLATE
     Dosage: 150 MILLIGRAM, QD
     Route: 048
     Dates: start: 201901, end: 201902
  10. FUROSEMIDE. [Concomitant]
     Active Substance: FUROSEMIDE
     Dosage: 40 MILLIGRAM, QD
     Route: 065
  11. MEKINIST [Suspect]
     Active Substance: TRAMETINIB DIMETHYL SULFOXIDE
     Dosage: UNK
  12. MEKINIST [Suspect]
     Active Substance: TRAMETINIB DIMETHYL SULFOXIDE
     Indication: METASTATIC MALIGNANT MELANOMA
     Dosage: 1 DF, 1X/DAY
     Route: 048
     Dates: start: 20181031, end: 201902
  13. TAFINLAR [Suspect]
     Active Substance: DABRAFENIB MESYLATE
     Dosage: 1 DF, 1X/DAY
     Route: 048
     Dates: start: 201902
  14. AUGMENTIN [Concomitant]
     Active Substance: AMOXICILLIN\CLAVULANATE POTASSIUM
     Dosage: UNK UNK, QD
     Route: 065

REACTIONS (18)
  - Sphincter of Oddi dysfunction [Unknown]
  - Staphylococcal infection [Recovered/Resolved]
  - Vomiting [Recovering/Resolving]
  - Gastrointestinal hypomotility [Unknown]
  - Gastrointestinal haemorrhage [Unknown]
  - Metastases to bone [Not Recovered/Not Resolved]
  - Pyrexia [Recovering/Resolving]
  - Hiccups [Unknown]
  - White blood cell count increased [Unknown]
  - Disease progression [Not Recovered/Not Resolved]
  - Abdominal pain [Recovering/Resolving]
  - Concomitant disease aggravated [Unknown]
  - Malignant neoplasm progression [Not Recovered/Not Resolved]
  - Erythema nodosum [Recovering/Resolving]
  - Platelet count increased [Unknown]
  - Flatulence [Unknown]
  - Haematochezia [Unknown]
  - Drug hypersensitivity [Unknown]

NARRATIVE: CASE EVENT DATE: 20190118
